FAERS Safety Report 5159126-X (Version None)
Quarter: 2006Q4

REPORT INFORMATION
  Report Type: 
  Country: None (occurrence: None)
  Receive Date: 20061117
  Receipt Date: 20061031
  Transmission Date: 20070319
  Serious: Yes (Hospitalization)
  Sender: FDA-Public Use
  Company Number: JP-2006-007637

PATIENT
  Age: 53 Year
  Sex: Female
  Weight: 56.9 kg

DRUGS (7)
  1. BETAFERON (INTERFERON BETA-1B) INJECTION, 250?G [Suspect]
     Indication: MULTIPLE SCLEROSIS
     Dosage: 8 MIU, EVERY 2D, SUBCUTANEOUS
     Route: 058
     Dates: start: 20010401, end: 20060101
  2. BASEN (VOGLIBOSE) TABLET [Concomitant]
  3. LAC B (LACTOBACILLUS BIFIDUS, LYOPHILIZED) POWDER [Concomitant]
  4. JUVELA NICOTINATE (TOCOPHERYL NICOTINATE) CAPSULE [Concomitant]
  5. MECOBALAMIN (MECOBALAMIN) TABLET [Concomitant]
  6. TIZANIDINE HCL [Concomitant]
  7. LIORESAL TABLET [Concomitant]

REACTIONS (4)
  - CORNEAL DEPOSITS [None]
  - LYMPHADENOPATHY MEDIASTINAL [None]
  - SARCOIDOSIS [None]
  - VITREOUS OPACITIES [None]
